FAERS Safety Report 9257746 (Version 4)
Quarter: 2014Q1

REPORT INFORMATION
  Report Type: Spontaneous
  Country: US (occurrence: US)
  Receive Date: 20130426
  Receipt Date: 20140213
  Transmission Date: 20141002
  Serious: Yes (Hospitalization)
  Sender: FDA-Public Use
  Company Number: US-ASTRAZENECA-2009SE21464

PATIENT
  Age: 19778 Day
  Sex: Female

DRUGS (23)
  1. NEXIUM [Suspect]
     Indication: GASTROOESOPHAGEAL REFLUX DISEASE
     Dosage: 40 MG 1-2 TIMES PER DAY
     Route: 048
     Dates: start: 20070209
  2. NEXIUM [Suspect]
     Indication: GASTRITIS
     Dosage: 40 MG 1-2 TIMES PER DAY
     Route: 048
     Dates: start: 20070209
  3. NEXIUM [Suspect]
     Indication: GASTROOESOPHAGEAL REFLUX DISEASE
     Dosage: THREE TIMES DAYS,3 PILL DAY
     Route: 048
  4. NEXIUM [Suspect]
     Indication: GASTRITIS
     Dosage: THREE TIMES DAYS,3 PILL DAY
     Route: 048
  5. NEXIUM [Suspect]
     Indication: GASTROOESOPHAGEAL REFLUX DISEASE
     Route: 048
     Dates: start: 20070810
  6. NEXIUM [Suspect]
     Indication: GASTRITIS
     Route: 048
     Dates: start: 20070810
  7. OMEPRAZOLE [Suspect]
     Indication: ABDOMINAL DISCOMFORT
     Route: 048
     Dates: start: 200901
  8. OMEPRAZOLE [Suspect]
     Indication: ABDOMINAL DISCOMFORT
     Route: 048
  9. SEROQUEL [Suspect]
     Route: 048
  10. VITAMIN D [Concomitant]
  11. FLUOXETINE [Concomitant]
  12. AMLODIPINE [Concomitant]
  13. SPIRONOLACTONE [Concomitant]
  14. PROMETHACINE [Concomitant]
     Indication: NAUSEA
  15. POTASSIUM [Concomitant]
  16. MIRTAPINE [Concomitant]
  17. PREDNISONE [Concomitant]
     Dosage: TAKE AS DIRECTED
     Dates: start: 20060719
  18. RANITIDINE [Concomitant]
     Dates: start: 20061031
  19. LORTAB [Concomitant]
     Dosage: 5/500
     Dates: start: 20061208
  20. ALPRAZOLAM [Concomitant]
     Indication: ANXIETY
     Dosage: TAKE ONE HALF TO ONE TABLET EVERY SIX HOURS AS NEEDED
  21. ESTRADIOL [Concomitant]
     Dates: start: 20070711
  22. TRAMADOL HCL [Concomitant]
     Dates: start: 20071126
  23. FOLIC ACID [Concomitant]

REACTIONS (13)
  - Gallbladder disorder [Unknown]
  - Limb discomfort [Unknown]
  - Bone disorder [Unknown]
  - Osteoporosis [Unknown]
  - Multiple fractures [Unknown]
  - Bone loss [Unknown]
  - Arthritis [Unknown]
  - Diabetes mellitus [Unknown]
  - Rheumatoid arthritis [Unknown]
  - Vitamin D deficiency [Unknown]
  - Pain [Unknown]
  - Emotional distress [Unknown]
  - Foot fracture [Unknown]
